FAERS Safety Report 8337289 (Version 10)
Quarter: 2016Q1

REPORT INFORMATION
  Report Type: Spontaneous
  Country: US (occurrence: US)
  Receive Date: 20120113
  Receipt Date: 20160225
  Transmission Date: 20160526
  Serious: Yes (Other)
  Sender: FDA-Public Use
  Company Number: US-ASTRAZENECA-2011SE62707

PATIENT
  Age: 30493 Day
  Sex: Female
  Weight: 58.1 kg

DRUGS (8)
  1. NEXIUM [Suspect]
     Active Substance: ESOMEPRAZOLE MAGNESIUM
     Indication: GASTROOESOPHAGEAL REFLUX DISEASE
     Dosage: ONE BEFORE BREAKFAST, AND ONE BEFORE DINNER
     Route: 048
  2. NEXIUM [Suspect]
     Active Substance: ESOMEPRAZOLE MAGNESIUM
     Indication: GASTROOESOPHAGEAL REFLUX DISEASE
     Route: 048
     Dates: start: 2005
  3. CRESTOR [Suspect]
     Active Substance: ROSUVASTATIN CALCIUM
     Route: 048
  4. CRESTOR [Suspect]
     Active Substance: ROSUVASTATIN CALCIUM
     Route: 048
  5. NEXIUM [Suspect]
     Active Substance: ESOMEPRAZOLE MAGNESIUM
     Indication: GASTROOESOPHAGEAL REFLUX DISEASE
     Dosage: GENERIC
     Route: 048
  6. NEXIUM [Suspect]
     Active Substance: ESOMEPRAZOLE MAGNESIUM
     Dosage: TWO TIMES A DAY
     Route: 048
  7. NEXIUM [Suspect]
     Active Substance: ESOMEPRAZOLE MAGNESIUM
     Indication: GASTROOESOPHAGEAL REFLUX DISEASE
     Route: 048
  8. PRILOSEC [Suspect]
     Active Substance: OMEPRAZOLE MAGNESIUM
     Route: 048

REACTIONS (18)
  - Emotional distress [Unknown]
  - Deafness [Unknown]
  - Hypoacusis [Unknown]
  - Intentional product misuse [Unknown]
  - Memory impairment [Unknown]
  - Intentional product use issue [Unknown]
  - Drug ineffective [Unknown]
  - Injury [Unknown]
  - Pain [Unknown]
  - Speech disorder [Unknown]
  - Insomnia [Unknown]
  - Mental impairment [Unknown]
  - Circumstance or information capable of leading to medication error [Unknown]
  - Extra dose administered [Unknown]
  - Abdominal pain upper [Unknown]
  - Off label use [Unknown]
  - Drug dose omission [Unknown]
  - Diabetes mellitus [Unknown]

NARRATIVE: CASE EVENT DATE: 20100526
